FAERS Safety Report 21029492 (Version 1)
Quarter: 2022Q2

REPORT INFORMATION
  Report Type: Spontaneous
  Country: US (occurrence: US)
  Receive Date: 20220630
  Receipt Date: 20220630
  Transmission Date: 20220721
  Serious: No
  Sender: FDA-Public Use
  Company Number: US-TAKEDA-2022TUS042684

PATIENT
  Sex: Male
  Weight: 59 kg

DRUGS (1)
  1. VYVANSE [Suspect]
     Active Substance: LISDEXAMFETAMINE DIMESYLATE
     Indication: Attention deficit hyperactivity disorder
     Dosage: UNK UNK, QD
     Route: 065

REACTIONS (12)
  - Appetite disorder [Unknown]
  - Unevaluable event [Unknown]
  - Fear [Unknown]
  - Crying [Unknown]
  - Memory impairment [Unknown]
  - Condition aggravated [Unknown]
  - Drug ineffective [Unknown]
  - Muscle twitching [Unknown]
  - Euphoric mood [Unknown]
  - Mood swings [Unknown]
  - Dyskinesia [Not Recovered/Not Resolved]
  - Anger [Unknown]
